FAERS Safety Report 8066012-4 (Version None)
Quarter: 2012Q1

REPORT INFORMATION
  Report Type: 
  Country: None (occurrence: None)
  Receive Date: 20120124
  Receipt Date: 20120117
  Transmission Date: 20120608
  Serious: Yes (Hospitalization, Disabling, Other)
  Sender: FDA-Public Use
  Company Number: GB-B.I. PHARMACEUTICALS,INC./RIDGEFIELD-2012-UK-00055UK

PATIENT
  Age: 79 Year
  Sex: Female

DRUGS (4)
  1. CLOPIDOGREL [Concomitant]
  2. TRAJENTA [Suspect]
     Dosage: 5 MG
     Route: 048
     Dates: start: 20111027
  3. ASPIRIN [Concomitant]
  4. GLICLAZIDE [Concomitant]

REACTIONS (3)
  - FLUSHING [None]
  - MUSCULAR WEAKNESS [None]
  - SENSORY LOSS [None]
